FAERS Safety Report 10639380 (Version 1)
Quarter: 2014Q4

REPORT INFORMATION
  Report Type: Report from Study
  Country: US (occurrence: US)
  Receive Date: 20141208
  Receipt Date: 20141208
  Transmission Date: 20150529
  Serious: Yes (Death, Other)
  Sender: FDA-Public Use
  Company Number: PHEH2014US024222

PATIENT
  Sex: Male

DRUGS (1)
  1. GLEEVEC [Suspect]
     Active Substance: IMATINIB MESYLATE
     Indication: NEOPLASM MALIGNANT
     Dosage: 400 MG, QD
     Route: 048

REACTIONS (4)
  - Gastric cancer [Unknown]
  - Diaphragm neoplasm [Unknown]
  - Throat cancer [Unknown]
  - Oncologic complication [Fatal]

NARRATIVE: CASE EVENT DATE: 2012
